FAERS Safety Report 19063962 (Version 1)
Quarter: 2021Q1

REPORT INFORMATION
  Report Type: Spontaneous
  Country: PT (occurrence: PT)
  Receive Date: 20210326
  Receipt Date: 20210326
  Transmission Date: 20210420
  Serious: Yes (Other)
  Sender: FDA-Public Use
  Company Number: PT-MYLANLABS-2021M1015366

PATIENT
  Age: 42 Year
  Sex: Female

DRUGS (7)
  1. DIAZEPAM. [Concomitant]
     Active Substance: DIAZEPAM
     Dosage: 10 MILLIGRAM, TID
  2. FLUOXETINE [Suspect]
     Active Substance: FLUOXETINE HYDROCHLORIDE
     Indication: ANTIDEPRESSANT THERAPY
     Dosage: 60 MILLIGRAM (PROGRESSIVELY ADJUSTED)
  3. QUETIAPINE. [Suspect]
     Active Substance: QUETIAPINE
     Indication: ANTIDEPRESSANT THERAPY
     Dosage: 200 MILLIGRAM
  4. MIRTAZAPINE. [Suspect]
     Active Substance: MIRTAZAPINE
     Indication: ANTIDEPRESSANT THERAPY
     Dosage: 30 MILLIGRAM
  5. VENLAFAXINE [Suspect]
     Active Substance: VENLAFAXINE HYDROCHLORIDE
     Indication: ANTIDEPRESSANT THERAPY
     Dosage: 300 MILLIGRAM
  6. BUPROPION. [Concomitant]
     Active Substance: BUPROPION
     Dosage: 300 MILLIGRAM
  7. CLOMIPRAMINE [Concomitant]
     Active Substance: CLOMIPRAMINE
     Dosage: 75 MILLIGRAM, TID

REACTIONS (6)
  - Suicidal ideation [Unknown]
  - Memory impairment [Unknown]
  - Asthenia [Unknown]
  - Clinomania [Unknown]
  - Psychomotor retardation [Unknown]
  - Disturbance in attention [Unknown]
